FAERS Safety Report 13239897 (Version 3)
Quarter: 2017Q3

REPORT INFORMATION
  Report Type: Spontaneous
  Country: US (occurrence: US)
  Receive Date: 20170216
  Receipt Date: 20170925
  Transmission Date: 20171127
  Serious: No
  Sender: FDA-Public Use
  Company Number: US-PFIZER INC-2017062406

PATIENT
  Age: 89 Year
  Sex: Female

DRUGS (4)
  1. XELJANZ [Suspect]
     Active Substance: TOFACITINIB CITRATE
     Indication: RHEUMATOID ARTHRITIS
     Dosage: 5 MG, DAILY
  2. XELJANZ [Suspect]
     Active Substance: TOFACITINIB CITRATE
     Dosage: 5 MG, ONE TWICE DAILY M/W/F, ONE DAILY REMAINING DAYS
     Route: 048
  3. XELJANZ [Suspect]
     Active Substance: TOFACITINIB CITRATE
     Dosage: 5 MG, 2X/DAY, (1 TABLET BY MOUTH TWICE A DAY ON MONDAY, WEDNESDAY, AND FRIDAY)
     Route: 048
  4. XELJANZ [Suspect]
     Active Substance: TOFACITINIB CITRATE
     Dosage: 5 MG, ALTERNATE DAY, (1 TABLET DAILY EVERY OTHER DAY)
     Route: 048

REACTIONS (11)
  - Musculoskeletal discomfort [Recovering/Resolving]
  - Decreased appetite [Unknown]
  - Tendon disorder [Unknown]
  - Decreased vibratory sense [Unknown]
  - Product use issue [Unknown]
  - Tenderness [Recovered/Resolved]
  - Pain in extremity [Recovered/Resolved]
  - Swelling [Recovered/Resolved]
  - Joint lock [Unknown]
  - Irritability [Unknown]
  - Breath sounds abnormal [Unknown]
